FAERS Safety Report 19622371 (Version 1)
Quarter: 2021Q3

REPORT INFORMATION
  Report Type: Spontaneous
  Country: AU (occurrence: AU)
  Receive Date: 20210728
  Receipt Date: 20210728
  Transmission Date: 20211014
  Serious: Yes (Hospitalization)
  Sender: FDA-Public Use
  Company Number: AU-MYLANLABS-2021M1041721

PATIENT
  Age: 10 Year
  Sex: Male

DRUGS (1)
  1. ZEMPREON [Suspect]
     Active Substance: ALBUTEROL SULFATE
     Indication: ASTHMA
     Dosage: UNK

REACTIONS (3)
  - Product substitution issue [Unknown]
  - Asthma [Unknown]
  - Product quality issue [Unknown]
